FAERS Safety Report 7169764-0 (Version None)
Quarter: 2010Q4

REPORT INFORMATION
  Report Type: 
  Country: None (occurrence: None)
  Receive Date: 20101217
  Receipt Date: 20100319
  Transmission Date: 20110411
  Serious: No
  Sender: FDA-Public Use
  Company Number: A0851149A

PATIENT
  Age: 38 Year
  Sex: Male

DRUGS (3)
  1. SORIATANE [Suspect]
     Indication: PSORIASIS
     Dosage: 25MG PER DAY
     Route: 048
     Dates: start: 20100215
  2. OMEPRAZOLE [Concomitant]
  3. BEER [Concomitant]

REACTIONS (2)
  - ERYTHEMA [None]
  - FEELING HOT [None]
